FAERS Safety Report 24752672 (Version 1)
Quarter: 2024Q4

REPORT INFORMATION
  Report Type: Spontaneous
  Country: US (occurrence: US)
  Receive Date: 20241219
  Receipt Date: 20241219
  Transmission Date: 20250115
  Serious: No
  Sender: PACIRA
  Company Number: US-ORG100016242-2024000409

PATIENT
  Sex: Female

DRUGS (4)
  1. EXPAREL [Suspect]
     Active Substance: BUPIVACAINE
     Indication: Nerve block
     Route: 065
     Dates: start: 20240617, end: 20240617
  2. EXPAREL [Suspect]
     Active Substance: BUPIVACAINE
     Indication: Nerve block
     Dosage: 10 ML OF EXPAREL/MARCAINE/SALINE
     Route: 050
     Dates: start: 20240619, end: 20240619
  3. MARCAINE [Suspect]
     Active Substance: BUPIVACAINE HYDROCHLORIDE
     Indication: Surgery
     Dosage: 10 ML OF EXPAREL/MARCAINE/SALINE
     Route: 050
     Dates: start: 20240619, end: 20240619
  4. SALINE [Suspect]
     Active Substance: SODIUM CHLORIDE
     Indication: Surgery
     Dosage: 10 ML OF EXPAREL/MARCAINE/SALINE
     Route: 050
     Dates: start: 20240619, end: 20240619

REACTIONS (2)
  - No adverse event [Unknown]
  - Inappropriate schedule of product administration [Unknown]

NARRATIVE: CASE EVENT DATE: 20240619
